FAERS Safety Report 11990575 (Version 2)
Quarter: 2016Q1

REPORT INFORMATION
  Report Type: Spontaneous
  Country: FR (occurrence: FR)
  Receive Date: 20160202
  Receipt Date: 20160307
  Transmission Date: 20160526
  Serious: Yes (Life-Threatening, Hospitalization)
  Sender: FDA-Public Use
  Company Number: FR-ASTRAZENECA-2016SE10733

PATIENT
  Age: 19971 Day
  Sex: Male

DRUGS (2)
  1. XEROQUEL [Suspect]
     Active Substance: QUETIAPINE FUMARATE
     Route: 048
     Dates: start: 20160110, end: 20160110
  2. THERALENE [Suspect]
     Active Substance: TRIMEPRAZINE
     Route: 048
     Dates: start: 20160110, end: 20160110

REACTIONS (9)
  - Hyperreflexia [Unknown]
  - Nervous system disorder [Unknown]
  - Vomiting [Recovered/Resolved]
  - Respiratory acidosis [Unknown]
  - Staphylococcal sepsis [Unknown]
  - Intentional overdose [Recovered/Resolved]
  - Respiratory depression [Recovered/Resolved]
  - Pneumonia aspiration [Recovering/Resolving]
  - Somnolence [Recovered/Resolved]

NARRATIVE: CASE EVENT DATE: 20160110
